FAERS Safety Report 19567827 (Version 5)
Quarter: 2021Q3

REPORT INFORMATION
  Report Type: Report from Study
  Country: IL (occurrence: IL)
  Receive Date: 20210716
  Receipt Date: 20210804
  Transmission Date: 20211014
  Serious: Yes (Hospitalization)
  Sender: FDA-Public Use
  Company Number: IL-EISAI MEDICAL RESEARCH-EC-2021-096204

PATIENT
  Age: 42 Year
  Sex: Female
  Weight: 57 kg

DRUGS (11)
  1. LOPERAMIDE [Concomitant]
     Active Substance: LOPERAMIDE
     Dates: start: 202005
  2. FENTANYL. [Concomitant]
     Active Substance: FENTANYL
     Dates: start: 202006
  3. OMEPRADEX [Concomitant]
     Active Substance: OMEPRAZOLE
     Dates: start: 202006
  4. OPTALGIN [Concomitant]
     Active Substance: METAMIZOLE
     Dates: start: 202006
  5. LENVATINIB [Suspect]
     Active Substance: LENVATINIB
     Indication: COLORECTAL CANCER
     Route: 048
     Dates: start: 20210425, end: 20210708
  6. EVOREL CONT [Concomitant]
     Dates: start: 202011
  7. ZYPREXA [Concomitant]
     Active Substance: OLANZAPINE
     Dates: start: 202102
  8. NORVASK [AMLODIPINE BESILATE] [Concomitant]
     Dates: start: 20210503
  9. METOCLOPRAMIDE. [Concomitant]
     Active Substance: METOCLOPRAMIDE
     Dates: start: 202005
  10. VALSARTAN. [Concomitant]
     Active Substance: VALSARTAN
     Dates: start: 20210502
  11. LENVATINIB [Suspect]
     Active Substance: LENVATINIB
     Route: 048
     Dates: start: 20210718

REACTIONS (1)
  - Diarrhoea [Recovered/Resolved]

NARRATIVE: CASE EVENT DATE: 20210708
